FAERS Safety Report 16199389 (Version 1)
Quarter: 2019Q2

REPORT INFORMATION
  Report Type: Spontaneous
  Country: JP (occurrence: JP)
  Receive Date: 20190415
  Receipt Date: 20190415
  Transmission Date: 20190711
  Serious: Yes (Other)
  Sender: FDA-Public Use
  Company Number: JP-BAYER-2019-075420

PATIENT

DRUGS (1)
  1. STIVARGA [Suspect]
     Active Substance: REGORAFENIB
     Indication: COLORECTAL CANCER RECURRENT
     Dosage: 160 MG, QD
     Route: 048
     Dates: start: 20181221

REACTIONS (1)
  - Colorectal cancer recurrent [Not Recovered/Not Resolved]

NARRATIVE: CASE EVENT DATE: 20190401
